FAERS Safety Report 15697087 (Version 2)
Quarter: 2018Q4

REPORT INFORMATION
  Report Type: Spontaneous
  Country: US (occurrence: US)
  Receive Date: 20181206
  Receipt Date: 20181228
  Transmission Date: 20190205
  Serious: No
  Sender: FDA-Public Use
  Company Number: US-PFIZER INC-2018497321

PATIENT
  Age: 75 Year
  Sex: Female
  Weight: 60.33 kg

DRUGS (1)
  1. GABAPENTIN. [Suspect]
     Active Substance: GABAPENTIN
     Indication: HERPES ZOSTER
     Dosage: 100 MG, 1X/DAY
     Route: 048
     Dates: start: 201811, end: 2018

REACTIONS (10)
  - Nervousness [Unknown]
  - Confusional state [Unknown]
  - Feeling abnormal [Unknown]
  - Abnormal dreams [Unknown]
  - Malaise [Unknown]
  - Dizziness [Unknown]
  - Hallucination [Recovered/Resolved]
  - Dyspnoea [Unknown]
  - Drug ineffective [Unknown]
  - Thinking abnormal [Unknown]

NARRATIVE: CASE EVENT DATE: 2018
